FAERS Safety Report 13893239 (Version 2)
Quarter: 2017Q3

REPORT INFORMATION
  Report Type: Spontaneous
  Country: NZ (occurrence: NZ)
  Receive Date: 20170822
  Receipt Date: 20170904
  Transmission Date: 20171127
  Serious: No
  Sender: FDA-Public Use
  Company Number: NZ-BAXTER-2017BAX030018

PATIENT
  Age: 68 Year
  Sex: Male

DRUGS (38)
  1. SODUM ACETATE [Suspect]
     Active Substance: SODIUM ACETATE ANHYDROUS
     Indication: PARENTERAL NUTRITION
     Dosage: TUESDAY
     Route: 065
     Dates: start: 20170801, end: 20170806
  2. SODUM ACETATE [Suspect]
     Active Substance: SODIUM ACETATE ANHYDROUS
     Route: 065
     Dates: start: 20170809
  3. COPPER 100MCG/ML [Suspect]
     Active Substance: COPPER
     Indication: PARENTERAL NUTRITION
     Dosage: TUESDAY
     Route: 065
     Dates: start: 20170801, end: 20170806
  4. CHROMIUM [Suspect]
     Active Substance: CHROMIC CHLORIDE\CHROMIUM
     Indication: PARENTERAL NUTRITION
     Dosage: TUESDAY
     Route: 065
     Dates: start: 20170801, end: 20170806
  5. SELENIUM 30MCG/ML [Suspect]
     Active Substance: SELENIUM
     Route: 065
     Dates: start: 20170809
  6. SODIUM IODIDE 51 MICROGRAM/ML [Suspect]
     Active Substance: SODIUM IODIDE
     Indication: PARENTERAL NUTRITION
     Dosage: TUESDAY
     Route: 065
     Dates: start: 20170801, end: 20170806
  7. SODIUM IODIDE 51 MICROGRAM/ML [Suspect]
     Active Substance: SODIUM IODIDE
     Route: 065
     Dates: start: 20170809
  8. SODIUM CHLORIDE 4MMOL/ML [Suspect]
     Active Substance: SODIUM CHLORIDE
     Indication: PARENTERAL NUTRITION
     Dosage: TUESDAY
     Route: 065
     Dates: start: 20170801, end: 20170806
  9. MAGNESIUM SULFATE 2MMOL/ML [Suspect]
     Active Substance: MAGNESIUM SULFATE
     Indication: PARENTERAL NUTRITION
     Dosage: TUESDAY; STRENGTH: 2 MMOL/ML
     Route: 065
     Dates: start: 20170801, end: 20170806
  10. WATER FOR INJECTION [Suspect]
     Active Substance: WATER
     Route: 065
     Dates: start: 20170809
  11. SELENIUM 30MCG/ML [Suspect]
     Active Substance: SELENIUM
     Indication: PARENTERAL NUTRITION
     Dosage: TUESDAY
     Route: 065
     Dates: start: 20170801, end: 20170806
  12. CLINOLEIC, EMULSION FOR INFUSION [Suspect]
     Active Substance: OLIVE OIL\SOYBEAN OIL
     Indication: PARENTERAL NUTRITION
     Dosage: TUESDAY
     Route: 065
     Dates: start: 20170801, end: 20170806
  13. GLUCOSE 70% [Suspect]
     Active Substance: DEXTROSE
     Route: 065
     Dates: start: 20170809
  14. SOLUVIT N [Suspect]
     Active Substance: VITAMINS
     Indication: PARENTERAL NUTRITION
     Dosage: TUESDAY
     Route: 065
     Dates: start: 20170801, end: 20170806
  15. VITALIPID ADULT [Suspect]
     Active Substance: ERGOCALCIFEROL\PHYTONADIONE\RETINOL\TOCOPHEROL
     Dosage: VITALIPID N ADULT
     Route: 065
     Dates: start: 20170809
  16. POTASSIUM ACETATE 5MMOL/ML [Suspect]
     Active Substance: POTASSIUM ACETATE
     Indication: PARENTERAL NUTRITION
     Dosage: TUESDAY
     Route: 065
     Dates: start: 20170801, end: 20170806
  17. MAGNESIUM SULFATE 2MMOL/ML [Suspect]
     Active Substance: MAGNESIUM SULFATE
     Dosage: STRENGTH: 2 MMOL/ML
     Route: 065
     Dates: start: 20170809
  18. COPPER 100MCG/ML [Suspect]
     Active Substance: COPPER
     Route: 065
     Dates: start: 20170809
  19. CERNEVIT [Suspect]
     Active Substance: VITAMINS
     Route: 065
     Dates: start: 20170807, end: 20170809
  20. VITALIPID ADULT [Suspect]
     Active Substance: ERGOCALCIFEROL\PHYTONADIONE\RETINOL\TOCOPHEROL
     Indication: PARENTERAL NUTRITION
     Dosage: VITALIPID N ADULT, TUESDAY
     Route: 065
     Dates: start: 20170801, end: 20170806
  21. CHROMIUM [Suspect]
     Active Substance: CHROMIC CHLORIDE\CHROMIUM
     Route: 065
     Dates: start: 20170809
  22. CALCIUM GLUCONATE 0.15MMOL/ML [Suspect]
     Active Substance: CALCIUM GLUCONATE
     Route: 065
     Dates: start: 20170809
  23. WATER FOR INJECTION [Suspect]
     Active Substance: WATER
     Indication: PARENTERAL NUTRITION
     Dosage: TUESDAY
     Route: 065
     Dates: start: 20170801, end: 20170806
  24. SOLUVIT N [Suspect]
     Active Substance: VITAMINS
     Route: 065
     Dates: start: 20170809
  25. POTASSIUM ACETATE 5MMOL/ML [Suspect]
     Active Substance: POTASSIUM ACETATE
     Route: 065
     Dates: start: 20170809
  26. IRON SYRINGE 10MICROMOL/ML [Suspect]
     Active Substance: IRON
     Dosage: IRON SYRINGE
     Route: 065
     Dates: start: 20170809
  27. SYNTHAMIN [Suspect]
     Active Substance: AMINO ACIDS
     Route: 065
     Dates: start: 20170809
  28. CERNEVIT [Suspect]
     Active Substance: VITAMINS
     Indication: PARENTERAL NUTRITION
     Dosage: MID-2016
     Route: 065
     Dates: start: 2016, end: 20170801
  29. POTASSIUM DI-H PHOSPHATE 1MMOL/ML [Suspect]
     Active Substance: POTASSIUM PHOSPHATE, MONOBASIC
     Route: 065
     Dates: start: 20170809
  30. IRON SYRINGE 10MICROMOL/ML [Suspect]
     Active Substance: IRON
     Indication: PARENTERAL NUTRITION
     Dosage: TUESDAY, IRON SYRINGE
     Route: 065
     Dates: start: 20170801, end: 20170806
  31. ZINC 2.5MG/ML [Suspect]
     Active Substance: ZINC
     Indication: PARENTERAL NUTRITION
     Dosage: TUESDAY
     Route: 065
     Dates: start: 20170801, end: 20170806
  32. CALCIUM GLUCONATE 0.15MMOL/ML [Suspect]
     Active Substance: CALCIUM GLUCONATE
     Indication: PARENTERAL NUTRITION
     Dosage: TUESDAY
     Route: 065
     Dates: start: 20170801, end: 20170806
  33. SODIUM CHLORIDE 4MMOL/ML [Suspect]
     Active Substance: SODIUM CHLORIDE
     Route: 065
     Dates: start: 20170809
  34. CLINOLEIC, EMULSION FOR INFUSION [Suspect]
     Active Substance: OLIVE OIL\SOYBEAN OIL
     Route: 065
     Dates: start: 20170809
  35. SYNTHAMIN [Suspect]
     Active Substance: AMINO ACIDS
     Indication: PARENTERAL NUTRITION
     Dosage: TUESDAY
     Route: 065
     Dates: start: 20170801, end: 20170806
  36. GLUCOSE 70% [Suspect]
     Active Substance: DEXTROSE
     Indication: PARENTERAL NUTRITION
     Dosage: TUESDAY
     Route: 065
     Dates: start: 20170801, end: 20170806
  37. POTASSIUM DI-H PHOSPHATE 1MMOL/ML [Suspect]
     Active Substance: POTASSIUM PHOSPHATE, MONOBASIC
     Indication: PARENTERAL NUTRITION
     Dosage: TUESDAY
     Route: 065
     Dates: start: 20170801, end: 20170806
  38. ZINC 2.5MG/ML [Suspect]
     Active Substance: ZINC
     Route: 065
     Dates: start: 20170809

REACTIONS (7)
  - Bile output increased [Recovered/Resolved]
  - Dyspnoea [Recovered/Resolved]
  - Energy increased [Unknown]
  - Headache [Recovered/Resolved]
  - Gastrooesophageal reflux disease [Recovered/Resolved]
  - Vitamin B6 increased [Unknown]
  - Arthralgia [Recovered/Resolved]

NARRATIVE: CASE EVENT DATE: 20170801
